FAERS Safety Report 25019282 (Version 2)
Quarter: 2025Q2

REPORT INFORMATION
  Report Type: Spontaneous
  Country: JP (occurrence: JP)
  Receive Date: 20250227
  Receipt Date: 20250528
  Transmission Date: 20250716
  Serious: Yes (Other)
  Sender: ALEXION PHARMACEUTICALS
  Company Number: JP-ASTRAZENECA-250017776_013220_P_1

PATIENT
  Age: 86 Year
  Weight: 68 kg

DRUGS (16)
  1. IMJUDO [Suspect]
     Active Substance: TREMELIMUMAB\TREMELIMUMAB-ACTL
     Indication: Hepatocellular carcinoma
  2. IMFINZI [Suspect]
     Active Substance: DURVALUMAB
     Indication: Hepatocellular carcinoma
     Dosage: 1500 MILLIGRAM, Q4W
  3. ASPIRIN [Concomitant]
     Active Substance: ASPIRIN
  4. OLMESARTAN [Concomitant]
     Active Substance: OLMESARTAN
  5. VONOPRAZAN FUMARATE [Concomitant]
     Active Substance: VONOPRAZAN FUMARATE
  6. HERBESSER [Concomitant]
     Active Substance: DILTIAZEM HYDROCHLORIDE
  7. PILSICAINIDE HYDROCHLORIDE [Concomitant]
     Active Substance: PILSICAINIDE HYDROCHLORIDE
  8. ROSUVASTATIN [Concomitant]
     Active Substance: ROSUVASTATIN
  9. ESCITALOPRAM [Concomitant]
     Active Substance: ESCITALOPRAM OXALATE
  10. SITAGLIPTIN [Concomitant]
     Active Substance: SITAGLIPTIN
  11. DAPAGLIFLOZIN [Concomitant]
     Active Substance: DAPAGLIFLOZIN
  12. REBAMIPIDE [Concomitant]
     Active Substance: REBAMIPIDE
  13. MIYA-BM [Concomitant]
     Active Substance: CLOSTRIDIUM BUTYRICUM SPORES STRAIN M-55
  14. MAGNESIUM OXIDE [Concomitant]
     Active Substance: MAGNESIUM OXIDE
  15. MIRABEGRON [Concomitant]
     Active Substance: MIRABEGRON
  16. SILODOSIN [Concomitant]
     Active Substance: SILODOSIN

REACTIONS (2)
  - Anaphylactic shock [Recovered/Resolved]
  - Thyroiditis [Not Recovered/Not Resolved]
